FAERS Safety Report 24775080 (Version 2)
Quarter: 2025Q1

REPORT INFORMATION
  Report Type: Spontaneous
  Country: US (occurrence: US)
  Receive Date: 20241226
  Receipt Date: 20250103
  Transmission Date: 20250409
  Serious: Yes (Other)
  Sender: TEVA
  Company Number: US-TEVA-VS-3277293

PATIENT
  Age: 54 Year
  Sex: Female

DRUGS (3)
  1. PREDNISONE [Suspect]
     Active Substance: PREDNISONE
     Indication: Cogan^s syndrome
     Route: 048
  2. PREDNISONE [Suspect]
     Active Substance: PREDNISONE
     Indication: Cogan^s syndrome
     Dosage: 9 WEEKS AFTER STARTING TREATMENT
     Route: 048
  3. NIVOLUMAB [Suspect]
     Active Substance: NIVOLUMAB
     Indication: Metastases to central nervous system
     Route: 065

REACTIONS (2)
  - Cogan^s syndrome [Not Recovered/Not Resolved]
  - Metastatic malignant melanoma [Unknown]
